FAERS Safety Report 4861203-5 (Version None)
Quarter: 2005Q4

REPORT INFORMATION
  Report Type: 
  Country: None (occurrence: None)
  Receive Date: 20051216
  Receipt Date: 20051114
  Transmission Date: 20060501
  Serious: Yes (Other)
  Sender: FDA-Public Use
  Company Number: 200510557BYL

PATIENT
  Age: 67 Year
  Sex: Male
  Weight: 54.4 kg

DRUGS (3)
  1. ADALAT [Suspect]
     Dosage: 10 MG, ONCE, ORAL
     Route: 048
     Dates: start: 20051110
  2. ZOLPIDEM TARTRATE [Suspect]
     Indication: INSOMNIA
     Dosage: 5 MG, QD, ORAL
     Route: 048
     Dates: start: 20051110
  3. FLOMOX [Concomitant]

REACTIONS (4)
  - AMNESIA [None]
  - DELIRIUM [None]
  - DRUG INTERACTION [None]
  - MEDICATION ERROR [None]
